FAERS Safety Report 19792855 (Version 2)
Quarter: 2021Q3

REPORT INFORMATION
  Report Type: Spontaneous
  Country: US (occurrence: US)
  Receive Date: 20210906
  Receipt Date: 20210922
  Transmission Date: 20211014
  Serious: Yes (Other)
  Sender: FDA-Public Use
  Company Number: US-PFIZER INC-202100951567

PATIENT
  Age: 68 Year
  Sex: Female
  Weight: 69.4 kg

DRUGS (1)
  1. NIFEDIPINE. [Suspect]
     Active Substance: NIFEDIPINE
     Indication: HYPERTENSION
     Dosage: UNK

REACTIONS (3)
  - Atrial fibrillation [Recovering/Resolving]
  - Chest discomfort [Recovering/Resolving]
  - Rash [Recovering/Resolving]
